FAERS Safety Report 10079277 (Version 3)
Quarter: 2014Q3

REPORT INFORMATION
  Report Type: Spontaneous
  Country: US (occurrence: US)
  Receive Date: 20140415
  Receipt Date: 20140909
  Transmission Date: 20150326
  Serious: No
  Sender: FDA-Public Use
  Company Number: US-PFIZER INC-2014055184

PATIENT
  Age: 57 Year
  Sex: Female

DRUGS (2)
  1. VFEND [Suspect]
     Active Substance: VORICONAZOLE
     Indication: ASPERGILLUS INFECTION
     Dosage: 200 MG, UNK
     Dates: start: 20140203
  2. VANTIN [Suspect]
     Active Substance: CEFPODOXIME PROXETIL
     Dosage: UNK

REACTIONS (2)
  - Therapeutic response decreased [Unknown]
  - Nausea [Unknown]
